FAERS Safety Report 21231582 (Version 3)
Quarter: 2022Q4

REPORT INFORMATION
  Report Type: Spontaneous
  Country: US (occurrence: US)
  Receive Date: 20220819
  Receipt Date: 20221018
  Transmission Date: 20230113
  Serious: No
  Sender: FDA-Public Use
  Company Number: US-JNJFOC-20220828286

PATIENT
  Age: 48 Year
  Sex: Female
  Weight: 81.720 kg

DRUGS (1)
  1. TREMFYA [Suspect]
     Active Substance: GUSELKUMAB
     Indication: Psoriatic arthropathy
     Route: 058

REACTIONS (4)
  - Product dose omission issue [Unknown]
  - Device issue [Unknown]
  - Needle issue [Unknown]
  - Product leakage [Unknown]

NARRATIVE: CASE EVENT DATE: 20220806
